FAERS Safety Report 20878204 (Version 1)
Quarter: 2022Q2

REPORT INFORMATION
  Report Type: Spontaneous
  Country: US (occurrence: US)
  Receive Date: 20220526
  Receipt Date: 20220526
  Transmission Date: 20220720
  Serious: No
  Sender: FDA-Public Use
  Company Number: US-HORIZON THERAPEUTICS-HZN-2021-001722

PATIENT
  Sex: Male
  Weight: 138.3 kg

DRUGS (7)
  1. RAYOS [Suspect]
     Active Substance: PREDNISONE
     Indication: Product used for unknown indication
     Dosage: 20 MG
     Route: 065
  2. RAYOS [Suspect]
     Active Substance: PREDNISONE
     Dosage: 10 MG
     Route: 065
  3. TYVASO [Suspect]
     Active Substance: TREPROSTINIL
     Indication: Pulmonary arterial hypertension
     Dosage: 18-54 ?G, QID (3-9 BREATHS)
  4. TYVASO [Suspect]
     Active Substance: TREPROSTINIL
     Dosage: 60-120, UG, QID (10-20 BREATHS)
  5. TYVASO [Suspect]
     Active Substance: TREPROSTINIL
     Dosage: 60-120, UG, QID (10-20 BREATHS)
  6. TYVASO [Suspect]
     Active Substance: TREPROSTINIL
     Dosage: 18-54, UG, QID (10-20 BREATHS)
  7. WARFARIN SODIUM [Concomitant]
     Active Substance: WARFARIN SODIUM
     Dosage: UNK

REACTIONS (8)
  - Dyspnoea [Not Recovered/Not Resolved]
  - Diabetic foot [Unknown]
  - Localised infection [Recovered/Resolved]
  - Chest discomfort [Unknown]
  - Pharyngeal paraesthesia [Unknown]
  - Cough [Unknown]
  - Fluid retention [Unknown]
  - Off label use [Unknown]

NARRATIVE: CASE EVENT DATE: 20210101
